FAERS Safety Report 18490083 (Version 1)
Quarter: 2020Q4

REPORT INFORMATION
  Report Type: Spontaneous
  Country: US (occurrence: US)
  Receive Date: 20201111
  Receipt Date: 20201111
  Transmission Date: 20210114
  Serious: No
  Sender: FDA-Public Use
  Company Number: US-DRREDDYS-USA/USA/20/0128709

PATIENT
  Age: 58 Year
  Sex: Male

DRUGS (5)
  1. OLANZAPINE TABLETS 2.5 MG, 5 MG, 7.5 MG, 10 MG [Suspect]
     Active Substance: OLANZAPINE
     Indication: CHOREA
  2. IMMUNOGLOBULIN [Concomitant]
     Indication: ENCEPHALITIS AUTOIMMUNE
  3. CYCLOPHOSPHAMIDE. [Concomitant]
     Active Substance: CYCLOPHOSPHAMIDE
     Indication: NEURODEGENERATIVE DISORDER
  4. IMMUNOGLOBULIN [Concomitant]
     Indication: NEURODEGENERATIVE DISORDER
     Route: 042
  5. CYCLOPHOSPHAMIDE. [Concomitant]
     Active Substance: CYCLOPHOSPHAMIDE
     Indication: ENCEPHALITIS AUTOIMMUNE

REACTIONS (1)
  - Hyperglycaemia [Unknown]
